FAERS Safety Report 5884414-9 (Version None)
Quarter: 2008Q3

REPORT INFORMATION
  Report Type: 
  Country: None (occurrence: None)
  Receive Date: 20080915
  Receipt Date: 20080902
  Transmission Date: 20090109
  Serious: Yes (Other)
  Sender: FDA-Public Use
  Company Number: CM-MERCK-0205USA00682

PATIENT
  Age: 69 Year
  Sex: Male

DRUGS (1)
  1. STROMECTOL [Suspect]
     Indication: ONCHOCERCIASIS
     Route: 048
     Dates: start: 19950101

REACTIONS (3)
  - ENCEPHALOPATHY [None]
  - MENTAL STATUS CHANGES [None]
  - STUPOR [None]
